FAERS Safety Report 22360372 (Version 1)
Quarter: 2023Q2

REPORT INFORMATION
  Report Type: Spontaneous
  Country: US (occurrence: US)
  Receive Date: 20230524
  Receipt Date: 20230524
  Transmission Date: 20230722
  Serious: No
  Sender: FDA-Public Use
  Company Number: US-INSUD PHARMA-2305US03069

PATIENT

DRUGS (2)
  1. PROGESTERONE [Suspect]
     Active Substance: PROGESTERONE
     Indication: Hormone replacement therapy
     Dosage: UNK
     Route: 048
     Dates: end: 20230513
  2. PROGESTERONE [Suspect]
     Active Substance: PROGESTERONE
     Indication: Sleep disorder

REACTIONS (4)
  - Anxiety [Recovering/Resolving]
  - Malaise [Recovering/Resolving]
  - Temperature intolerance [Recovering/Resolving]
  - Intentional product use issue [Unknown]
